FAERS Safety Report 9775907 (Version 1)
Quarter: 2013Q4

REPORT INFORMATION
  Report Type: Spontaneous
  Country: CH (occurrence: CH)
  Receive Date: 20131220
  Receipt Date: 20131220
  Transmission Date: 20140711
  Serious: Yes (Hospitalization)
  Sender: FDA-Public Use
  Company Number: CH-GLAXOSMITHKLINE-B0954807A

PATIENT
  Age: 66 Year
  Sex: Female

DRUGS (10)
  1. BACTRIM FORTE [Suspect]
     Indication: PNEUMONIA
     Dosage: 6TAB PER DAY
     Route: 048
     Dates: start: 20130628, end: 20130708
  2. WELLVONE [Suspect]
     Indication: PNEUMONIA
     Route: 048
     Dates: start: 20130709, end: 20130718
  3. TOREM [Concomitant]
     Dosage: 5MG PER DAY
     Route: 048
  4. ELTROXIN [Concomitant]
     Indication: HYPOTHYROIDISM
     Dosage: .1MG PER DAY
     Route: 048
  5. PANTOZOL [Concomitant]
     Dosage: 40MG PER DAY
     Route: 048
  6. TEMESTA [Concomitant]
     Dosage: 5MG TWICE PER DAY
     Route: 048
  7. ROHYPNOL [Concomitant]
     Dosage: 1U PER DAY
     Route: 048
  8. SERETIDE [Concomitant]
     Dosage: 1PUFF TWICE PER DAY
     Route: 055
  9. PREDNISONE [Concomitant]
     Dosage: 5MG PER DAY
     Route: 048
  10. CO-DAFALGAN [Concomitant]
     Dosage: 1U AS REQUIRED
     Route: 048

REACTIONS (7)
  - Anaphylactoid reaction [Recovered/Resolved]
  - Rash macular [Recovered/Resolved]
  - Rash pruritic [Recovered/Resolved]
  - Nausea [Recovered/Resolved]
  - Blood pressure decreased [Recovered/Resolved]
  - Headache [Recovered/Resolved]
  - Rash [Recovered/Resolved]
